FAERS Safety Report 20361904 (Version 1)
Quarter: 2022Q1

REPORT INFORMATION
  Report Type: Spontaneous
  Country: US (occurrence: None)
  Receive Date: 20220120
  Receipt Date: 20220120
  Transmission Date: 20220423
  Serious: Yes (Other)
  Sender: FDA-Public Use
  Company Number: None

PATIENT
  Age: 52 Year
  Sex: Male
  Weight: 78.75 kg

DRUGS (1)
  1. XIAFLEX [Suspect]
     Active Substance: COLLAGENASE CLOSTRIDIUM HISTOLYTICUM
     Indication: Peyronie^s disease
     Dates: start: 20210802, end: 20211101

REACTIONS (11)
  - Penile swelling [None]
  - Penile contusion [None]
  - Haematoma [None]
  - Contusion [None]
  - Abdominal distension [None]
  - Erectile dysfunction [None]
  - Condition aggravated [None]
  - Painful erection [None]
  - Penile plaque [None]
  - Penile curvature [None]
  - Drug ineffective [None]

NARRATIVE: CASE EVENT DATE: 20211101
